FAERS Safety Report 24224059 (Version 3)
Quarter: 2025Q1

REPORT INFORMATION
  Report Type: Spontaneous
  Country: US (occurrence: US)
  Receive Date: 20240819
  Receipt Date: 20250321
  Transmission Date: 20250408
  Serious: Yes (Other)
  Sender: PFIZER
  Company Number: US-PFIZER INC-202400238606

PATIENT
  Age: 73 Year
  Sex: Female

DRUGS (1)
  1. XELJANZ XR [Suspect]
     Active Substance: TOFACITINIB CITRATE
     Indication: Rheumatoid arthritis
     Dosage: XELJANZ XR 11 MG PO (ORALLY) QD (ONCE A DAY)
     Route: 048
     Dates: start: 202208

REACTIONS (8)
  - Neuropathy peripheral [Unknown]
  - Hip surgery [Unknown]
  - Dysphonia [Unknown]
  - Bone density decreased [Not Recovered/Not Resolved]
  - Hypergammaglobulinaemia benign monoclonal [Unknown]
  - Lipids abnormal [Unknown]
  - Joint lock [Unknown]
  - Alopecia [Unknown]
